FAERS Safety Report 7086253-2 (Version None)
Quarter: 2010Q4

REPORT INFORMATION
  Report Type: 
  Country: None (occurrence: None)
  Receive Date: 20101027
  Receipt Date: 20101011
  Transmission Date: 20110411
  Serious: Yes (Other)
  Sender: FDA-Public Use
  Company Number: ACO_02675_2010

PATIENT
  Sex: Female
  Weight: 58.0604 kg

DRUGS (2)
  1. AMPYRA [Suspect]
     Indication: GAIT DISTURBANCE
     Dosage: (10 MG BID ORAL)
     Route: 048
     Dates: start: 20100101
  2. AMPYRA [Suspect]
     Indication: MULTIPLE SCLEROSIS
     Dosage: (10 MG BID ORAL)
     Route: 048
     Dates: start: 20100101

REACTIONS (5)
  - BACK PAIN [None]
  - BALANCE DISORDER [None]
  - EYE COMPLICATION ASSOCIATED WITH DEVICE [None]
  - EYE INJURY [None]
  - FALL [None]
